FAERS Safety Report 7345449-2 (Version None)
Quarter: 2011Q1

REPORT INFORMATION
  Report Type: 
  Country: None (occurrence: None)
  Receive Date: 20110310
  Receipt Date: 20110301
  Transmission Date: 20110831
  Serious: Yes (Death, Hospitalization, Other)
  Sender: FDA-Public Use
  Company Number: US-BAXTER-2011BH003643

PATIENT
  Age: 70 Year
  Sex: Male

DRUGS (3)
  1. DIANEAL [Suspect]
     Indication: PERITONEAL DIALYSIS
     Route: 033
     Dates: end: 20101201
  2. DIANEAL [Suspect]
     Indication: PERITONEAL DIALYSIS
     Route: 033
     Dates: end: 20101201
  3. CHEMOTHERAPY [Suspect]
     Indication: NEOPLASM MALIGNANT
     Route: 065

REACTIONS (4)
  - SEPSIS [None]
  - IMMUNE SYSTEM DISORDER [None]
  - NEOPLASM MALIGNANT [None]
  - ABDOMINAL PAIN UPPER [None]
